FAERS Safety Report 5484150-7 (Version None)
Quarter: 2007Q4

REPORT INFORMATION
  Report Type: 
  Country: None (occurrence: None)
  Receive Date: 20071012
  Receipt Date: 20070730
  Transmission Date: 20080405
  Serious: No
  Sender: FDA-Public Use
  Company Number: US-ASTRAZENECA-2007UW18264

PATIENT
  Age: 65 Year
  Sex: Female
  Weight: 88.5 kg

DRUGS (7)
  1. SYMBICORT [Suspect]
     Indication: CHRONIC OBSTRUCTIVE PULMONARY DISEASE
     Dosage: 160/4.5 UG 2 PUFFS PER DAY
     Route: 055
     Dates: start: 20070701
  2. BENICAR [Concomitant]
  3. TRICOR [Concomitant]
  4. SPIRIVA [Concomitant]
  5. XOPENEX [Concomitant]
  6. ASMANEX TWISTHALER [Concomitant]
  7. FORADIL [Concomitant]

REACTIONS (4)
  - ASTHENIA [None]
  - HYPERTENSION [None]
  - ILL-DEFINED DISORDER [None]
  - NERVOUSNESS [None]
